FAERS Safety Report 5876463-1 (Version None)
Quarter: 2008Q3

REPORT INFORMATION
  Report Type: 
  Country: None (occurrence: None)
  Receive Date: 20080910
  Receipt Date: 20080902
  Transmission Date: 20090109
  Serious: Yes (Hospitalization)
  Sender: FDA-Public Use
  Company Number: A0706446C

PATIENT
  Age: 60 Year
  Sex: Female
  Weight: 44 kg

DRUGS (4)
  1. PAZOPANIB [Suspect]
     Dosage: 800MG PER DAY
     Route: 048
     Dates: start: 20071220
  2. LAPATINIB [Suspect]
     Dosage: 1500MG PER DAY
     Route: 048
     Dates: start: 20071220
  3. PERFUSALGAN [Concomitant]
     Dosage: 1G SINGLE DOSE
     Route: 042
     Dates: start: 20080324, end: 20080324
  4. VOLTAREN [Concomitant]
     Dosage: 75MG PER DAY
     Route: 030
     Dates: start: 20080313, end: 20080323

REACTIONS (6)
  - ANOREXIA [None]
  - DEHYDRATION [None]
  - DIARRHOEA [None]
  - HYPOTENSION [None]
  - MALAISE [None]
  - WEIGHT DECREASED [None]
